FAERS Safety Report 4313653-3 (Version None)
Quarter: 2004Q1

REPORT INFORMATION
  Report Type: 
  Country: None (occurrence: None)
  Receive Date: 20040304
  Receipt Date: 20040211
  Transmission Date: 20041129
  Serious: Yes (Other)
  Sender: FDA-Public Use
  Company Number: USA030639248

PATIENT
  Age: 88 Year
  Sex: Female
  Weight: 50 kg

DRUGS (9)
  1. FORTEO [Suspect]
     Indication: SPINAL FRACTURE
     Dosage: 20 UG/EVERY OTHER DAY
     Dates: start: 20030401
  2. EFFEXOR [Concomitant]
  3. ATIVAN [Concomitant]
  4. RISPERDAL [Concomitant]
  5. TRAZODONE HCL [Concomitant]
  6. ENSURE [Concomitant]
  7. PREMARIN [Concomitant]
  8. CITRUCEL (METHYLCELLULOSE) [Concomitant]
  9. CENTRUM [Concomitant]

REACTIONS (16)
  - ASTHENIA [None]
  - BACK PAIN [None]
  - BLOOD PRESSURE DECREASED [None]
  - BLOOD PRESSURE INCREASED [None]
  - CONTUSION [None]
  - COUGH [None]
  - DECREASED APPETITE [None]
  - DIZZINESS [None]
  - DYSGEUSIA [None]
  - HAEMORRHAGE SUBCUTANEOUS [None]
  - HEADACHE [None]
  - HEART RATE INCREASED [None]
  - INJECTION SITE HAEMORRHAGE [None]
  - NAUSEA [None]
  - PLATELET COUNT DECREASED [None]
  - UNEXPECTED THERAPEUTIC DRUG EFFECT [None]
